FAERS Safety Report 8990617 (Version 1)
Quarter: 2012Q4

REPORT INFORMATION
  Report Type: 
  Country: US (occurrence: US)
  Receive Date: 20121228
  Receipt Date: 20121228
  Transmission Date: 20130627
  Serious: Yes (Other)
  Sender: FDA-Public Use
  Company Number: US-JNJFOC-20121211802

PATIENT
  Sex: Female

DRUGS (1)
  1. BENADRYL [Suspect]
     Indication: HYPERSENSITIVITY
     Route: 048

REACTIONS (6)
  - Swelling face [Unknown]
  - Lip swelling [Unknown]
  - Eating disorder [Unknown]
  - Trismus [Unknown]
  - Off label use [Unknown]
  - Aphagia [None]
